FAERS Safety Report 5781628-3 (Version None)
Quarter: 2008Q2

REPORT INFORMATION
  Report Type: 
  Country: None (occurrence: None)
  Receive Date: 20080623
  Receipt Date: 20070430
  Transmission Date: 20081010
  Serious: No
  Sender: FDA-Public Use
  Company Number: US-ASTRAZENECA-2007UW08824

PATIENT
  Age: 47 Year
  Sex: Male
  Weight: 90.7 kg

DRUGS (3)
  1. RHINOCORT [Suspect]
     Indication: VIRUS CULTURE POSITIVE
     Route: 045
  2. RHINOCORT [Suspect]
     Indication: NASAL CONGESTION
     Route: 045
  3. ZANTAC [Concomitant]

REACTIONS (4)
  - DRY EYE [None]
  - DRY THROAT [None]
  - DYSPHAGIA [None]
  - NASAL DRYNESS [None]
